FAERS Safety Report 6220876-5 (Version None)
Quarter: 2009Q2

REPORT INFORMATION
  Report Type: 
  Country: None (occurrence: None)
  Receive Date: 20090604
  Receipt Date: 20090526
  Transmission Date: 20091009
  Serious: Yes (Other)
  Sender: FDA-Public Use
  Company Number: B0576559A

PATIENT
  Age: 35 Year
  Sex: Male

DRUGS (7)
  1. MELPHALAN (FORMULATION UNKNOWN) (GENERIC) (MELPHALAN) [Suspect]
     Indication: HODGKIN'S DISEASE
  2. ETOPOSIDE [Suspect]
     Indication: HODGKIN'S DISEASE
  3. CARMUSTINE [Suspect]
     Indication: HODGKIN'S DISEASE
  4. CYTARABINE [Suspect]
     Indication: HODGKIN'S DISEASE
  5. MITOGUAZONE [Concomitant]
  6. IFOSFAMIDE [Concomitant]
  7. VINORELBINE TARTRATE [Concomitant]

REACTIONS (7)
  - GASTROINTESTINAL MUCOSAL NECROSIS [None]
  - MUCOSAL INFLAMMATION [None]
  - NAUSEA [None]
  - NEUTROPENIA [None]
  - OROPHARYNGEAL PAIN [None]
  - STOMATITIS [None]
  - VOMITING [None]
